FAERS Safety Report 6843992-3 (Version None)
Quarter: 2010Q3

REPORT INFORMATION
  Report Type: 
  Country: None (occurrence: None)
  Receive Date: 20100715
  Receipt Date: 20100708
  Transmission Date: 20110219
  Serious: Yes (Other)
  Sender: FDA-Public Use
  Company Number: GB-SP-2010-03812

PATIENT
  Sex: Male

DRUGS (2)
  1. IMMUCYST [Suspect]
     Indication: CARCINOMA IN SITU
     Route: 065
     Dates: start: 20091001
  2. DIABETES MEDICATION (NOS) [Concomitant]

REACTIONS (2)
  - BOVINE TUBERCULOSIS [None]
  - EPIDIDYMITIS TUBERCULOUS [None]
